FAERS Safety Report 7536580-7 (Version None)
Quarter: 2011Q2

REPORT INFORMATION
  Report Type: 
  Country: None (occurrence: None)
  Receive Date: 20110609
  Receipt Date: 20110603
  Transmission Date: 20111010
  Serious: Yes (Other)
  Sender: FDA-Public Use
  Company Number: JP-SANOFI-AVENTIS-2010SA021450

PATIENT
  Age: 59 Year
  Sex: Female

DRUGS (6)
  1. LEUCOVORIN CALCIUM [Concomitant]
     Indication: COLON CANCER
     Route: 041
  2. FLUOROURACIL [Concomitant]
     Indication: COLON CANCER
     Route: 041
  3. ALL OTHER THERAPEUTIC PRODUCTS [Concomitant]
     Dosage: FORM INFUSION
  4. LEUCOVORIN CALCIUM [Concomitant]
     Route: 041
  5. FLUOROURACIL [Concomitant]
     Route: 041
  6. OXALIPLATIN [Suspect]
     Indication: COLON CANCER
     Route: 041

REACTIONS (1)
  - GASTROINTESTINAL PERFORATION [None]
